FAERS Safety Report 16166263 (Version 1)
Quarter: 2019Q2

REPORT INFORMATION
  Report Type: Spontaneous
  Country: US (occurrence: US)
  Receive Date: 20190406
  Receipt Date: 20190406
  Transmission Date: 20190711
  Serious: Yes (Other)
  Sender: FDA-Public Use
  Company Number: US-TOLMAR, INC.-TOLG20192200

PATIENT
  Age: 62 Year
  Sex: Female

DRUGS (12)
  1. ACYCLOVIR. [Suspect]
     Active Substance: ACYCLOVIR
     Indication: ANTIVIRAL PROPHYLAXIS
     Dosage: 800 MG 3/D FOR TREATMENT
     Route: 048
  2. GANCICLOVIR. [Concomitant]
     Active Substance: GANCICLOVIR
     Indication: OPHTHALMIC HERPES SIMPLEX
     Dosage: UNKNOWN
     Route: 047
  3. ACYCLOVIR. [Suspect]
     Active Substance: ACYCLOVIR
     Dosage: REPLACED WITH FAMCICLOVIR
     Route: 048
  4. FAMCICLOVIR. [Suspect]
     Active Substance: FAMCICLOVIR
     Dosage: 800 MG
     Route: 048
  5. GANCICLOVIR. [Concomitant]
     Active Substance: GANCICLOVIR
     Dosage: UNKNOWN
     Route: 047
  6. ACYCLOVIR. [Suspect]
     Active Substance: ACYCLOVIR
     Indication: OPHTHALMIC HERPES SIMPLEX
     Dosage: 800 MG 2/D FOR PROPHYLAXIS
     Route: 048
  7. FAMCICLOVIR. [Suspect]
     Active Substance: FAMCICLOVIR
     Indication: OPHTHALMIC HERPES SIMPLEX
     Dosage: 300 MG
     Route: 048
  8. ACYCLOVIR. [Suspect]
     Active Substance: ACYCLOVIR
     Dosage: 800 MG 3/D FOR PROPHYLAXIS
     Route: 048
  9. ACYCLOVIR. [Suspect]
     Active Substance: ACYCLOVIR
     Dosage: 800 MG 5/D FOR WORSENING, WITH TOPICAL GANCICLOVIR
     Route: 048
  10. ACYCLOVIR. [Suspect]
     Active Substance: ACYCLOVIR
     Dosage: 800 MG 5/D FOR RECURRENCE, WITH TOPICAL GANCICLOVIR
     Route: 048
  11. ACYCLOVIR. [Suspect]
     Active Substance: ACYCLOVIR
     Dosage: RESTART 800 MG 3/D FOR PROPHYLAXIS
     Route: 048
  12. GANCICLOVIR. [Concomitant]
     Active Substance: GANCICLOVIR
     Dosage: UNKNOWN
     Route: 047

REACTIONS (11)
  - Headache [Unknown]
  - Persistent corneal epithelial defect [Recovered/Resolved]
  - Treatment failure [Recovered/Resolved]
  - Tremor [Unknown]
  - Vision blurred [Recovered/Resolved]
  - Pathogen resistance [Recovered/Resolved]
  - Photophobia [Recovered/Resolved]
  - Punctate keratitis [Recovered/Resolved]
  - Drug resistance [Recovered/Resolved]
  - Ophthalmic herpes simplex [Recovered/Resolved]
  - Conjunctival hyperaemia [Recovered/Resolved]
